FAERS Safety Report 6520261-2 (Version None)
Quarter: 2009Q4

REPORT INFORMATION
  Report Type: 
  Country: None (occurrence: None)
  Receive Date: 20091229
  Receipt Date: 20091214
  Transmission Date: 20100525
  Serious: Yes (Hospitalization)
  Sender: FDA-Public Use
  Company Number: FR-PFIZER INC-2009309387

PATIENT
  Sex: Female

DRUGS (11)
  1. TAHOR [Suspect]
     Dosage: 40 MG, 1X/DAY
     Route: 048
     Dates: end: 20091015
  2. BI-PROFENID [Suspect]
     Dosage: UNK
     Route: 048
     Dates: start: 20090928, end: 20091015
  3. DAFALGAN CODEINE [Suspect]
     Dosage: 4 DF, UNK
     Route: 048
     Dates: start: 20090928, end: 20091015
  4. TRANSIPEG [Suspect]
     Dosage: 2 DF, UNK
     Route: 048
     Dates: start: 20090928, end: 20091015
  5. RANIPLEX [Suspect]
     Dosage: 300 MG, UNK
     Route: 048
     Dates: end: 20091015
  6. CALCITRATE [Suspect]
     Dosage: 500 MG, 2X/DAY
     Route: 048
     Dates: end: 20091015
  7. DIAMICRON [Suspect]
     Dosage: 30 MG, 4X/DAY
     Route: 048
     Dates: end: 20091015
  8. GLUCOPHAGE [Suspect]
     Dosage: 1000 MG, 4X/DAY
     Route: 048
     Dates: end: 20091015
  9. FLECAINIDE ACETATE [Suspect]
     Dosage: 100 MG, 1X/DAY
     Route: 048
     Dates: end: 20091015
  10. VASTAREL [Suspect]
     Dosage: 35 MG, 2X/DAY
     Route: 048
     Dates: end: 20091015
  11. ZELITREX [Concomitant]

REACTIONS (6)
  - DECREASED APPETITE [None]
  - DEHYDRATION [None]
  - DIARRHOEA [None]
  - GENERAL PHYSICAL HEALTH DETERIORATION [None]
  - RENAL FAILURE [None]
  - VOMITING [None]
